FAERS Safety Report 9901443 (Version 1)
Quarter: 2014Q1

REPORT INFORMATION
  Report Type: Spontaneous
  Country: US (occurrence: US)
  Receive Date: 20140217
  Receipt Date: 20140217
  Transmission Date: 20141002
  Serious: Yes (Other)
  Sender: FDA-Public Use
  Company Number: US-PFIZER INC-2014041236

PATIENT
  Age: 79 Year
  Sex: Male
  Weight: 68.03 kg

DRUGS (5)
  1. VIAGRA [Suspect]
     Indication: SEXUAL DYSFUNCTION
     Dosage: UNK
  2. VASOTEC [Concomitant]
     Indication: CARDIAC DISORDER
     Dosage: UNK, 2X/DAY
  3. NORVASC [Concomitant]
     Indication: CARDIAC DISORDER
     Dosage: UNK, 2X/DAY
  4. COREG [Concomitant]
     Indication: CARDIAC DISORDER
     Dosage: UNK, 2X/DAY
  5. CRESTOR [Concomitant]
     Indication: CARDIAC DISORDER
     Dosage: UNK, 2X/DAY

REACTIONS (1)
  - Lung neoplasm malignant [Recovering/Resolving]
